FAERS Safety Report 16072243 (Version 2)
Quarter: 2019Q2

REPORT INFORMATION
  Report Type: Spontaneous
  Country: US (occurrence: US)
  Receive Date: 20190314
  Receipt Date: 20190528
  Transmission Date: 20190711
  Serious: No
  Sender: FDA-Public Use
  Company Number: US-PFIZER INC-2019109759

PATIENT
  Age: 68 Year
  Sex: Male

DRUGS (7)
  1. INVANZ [Suspect]
     Active Substance: ERTAPENEM SODIUM
     Dosage: UNK
  2. CEFADROXIL. [Suspect]
     Active Substance: CEFADROXIL
  3. ERTAPENEM. [Suspect]
     Active Substance: ERTAPENEM SODIUM
  4. GABAPENTIN. [Suspect]
     Active Substance: GABAPENTIN
     Dosage: UNK
  5. DURICEF [Suspect]
     Active Substance: CEFADROXIL
     Dosage: UNK
  6. AZTREONAM. [Suspect]
     Active Substance: AZTREONAM
     Dosage: UNK
  7. NIACIN. [Suspect]
     Active Substance: NIACIN
     Dosage: UNK

REACTIONS (2)
  - Dizziness [Unknown]
  - Drug hypersensitivity [Unknown]
